FAERS Safety Report 21400838 (Version 3)
Quarter: 2023Q1

REPORT INFORMATION
  Report Type: Other
  Country: CA (occurrence: None)
  Receive Date: 20221003
  Receipt Date: 20230310
  Transmission Date: 20230417
  Serious: No
  Sender: FDA-Public Use
  Company Number: CA-ROCHE-3190716

PATIENT
  Age: 59 Year
  Sex: Female

DRUGS (3)
  1. OCREVUS [Suspect]
     Active Substance: OCRELIZUMAB
     Indication: Primary progressive multiple sclerosis
     Dosage: 300 MG AT DAY 0 AND 14, THEN 600 MG EVERY 6 MONTH
     Route: 042
     Dates: start: 20200109
  2. TYLENOL [Concomitant]
     Active Substance: ACETAMINOPHEN
  3. DALFAMPRIDINE [Concomitant]
     Active Substance: DALFAMPRIDINE

REACTIONS (5)
  - SARS-CoV-2 test positive [Unknown]
  - Band sensation [Unknown]
  - Back pain [Unknown]
  - Fear of injection [Unknown]
  - Asthenia [Unknown]

NARRATIVE: CASE EVENT DATE: 20220917
